FAERS Safety Report 14582658 (Version 6)
Quarter: 2018Q4

REPORT INFORMATION
  Report Type: Spontaneous
  Country: US (occurrence: US)
  Receive Date: 20180228
  Receipt Date: 20181010
  Transmission Date: 20190204
  Serious: Yes (Other)
  Sender: FDA-Public Use
  Company Number: US-PFIZER INC-2018082760

PATIENT
  Age: 71 Year
  Sex: Female
  Weight: 81 kg

DRUGS (135)
  1. PREVACID [Suspect]
     Active Substance: LANSOPRAZOLE
     Dosage: UNK
     Dates: start: 2005, end: 2006
  2. PREVACID [Suspect]
     Active Substance: LANSOPRAZOLE
     Dosage: UNK
     Dates: start: 20071220
  3. PROTONIX [Suspect]
     Active Substance: PANTOPRAZOLE SODIUM
     Dosage: 1 DF, 1X/DAY
     Dates: start: 20060328
  4. OMEPRAZOLE. [Suspect]
     Active Substance: OMEPRAZOLE
     Dosage: 1 DF, 1X/DAY
     Route: 048
     Dates: start: 20110124
  5. PREMARIN [Concomitant]
     Active Substance: ESTROGENS, CONJUGATED
     Dosage: 1 DF, 1X/DAY
     Dates: start: 20040311
  6. FOLIC ACID. [Concomitant]
     Active Substance: FOLIC ACID
     Dosage: UNK
     Dates: start: 20091225
  7. LOVENOX [Concomitant]
     Active Substance: ENOXAPARIN SODIUM
     Dosage: 40 MG/0.4 ML SYR
     Dates: start: 20130805
  8. LOSARTAN/HCT [Concomitant]
     Active Substance: HYDROCHLOROTHIAZIDE\LOSARTAN POTASSIUM
     Dosage: 50-12.5MG
     Dates: start: 20100708
  9. PRILOSEC OTC [Suspect]
     Active Substance: OMEPRAZOLE MAGNESIUM
     Dosage: UNK
     Route: 048
     Dates: start: 2005, end: 2016
  10. PEPTO-BISMOL [Concomitant]
     Active Substance: BISMUTH SUBSALICYLATE
     Indication: ANTACID THERAPY
     Dosage: UNK
     Dates: start: 1990
  11. MILK OF MAGNESIA [Concomitant]
     Active Substance: MAGNESIUM HYDROXIDE
     Dosage: UNK UNK, 2X/WEEK
     Dates: start: 2016
  12. ASPIRIN. [Concomitant]
     Active Substance: ASPIRIN
     Indication: ANTICOAGULANT THERAPY
     Dosage: 1 DF, 1X/DAY
     Route: 048
     Dates: start: 2014, end: 2017
  13. LOSARTAN POTASSIUM. [Concomitant]
     Active Substance: LOSARTAN POTASSIUM
     Dosage: UNK
     Dates: start: 20110531
  14. NASONEX [Concomitant]
     Active Substance: MOMETASONE FUROATE
     Dosage: 50 MCG/AC SPR- USE 2 SPR~YS LEN BID PRN
     Dates: start: 20070227
  15. CYCLOBENZAPRINE. [Concomitant]
     Active Substance: CYCLOBENZAPRINE
     Dosage: UNK
     Dates: start: 20070804
  16. ATENOLOL. [Concomitant]
     Active Substance: ATENOLOL
     Dosage: UNK
     Dates: start: 20100715
  17. PROMETHAZINE [Concomitant]
     Active Substance: PROMETHAZINE\PROMETHAZINE HYDROCHLORIDE
     Dosage: UNK
     Dates: start: 20100820
  18. FLUVIRIN [INFLUENZA VACCINE INACT SAG 3V] [Concomitant]
     Dosage: 2010-2011 VIAL
     Dates: start: 20101030
  19. FEXOFENADINE [Concomitant]
     Active Substance: FEXOFENADINE\FEXOFENADINE HYDROCHLORIDE
     Dosage: UNK
     Dates: start: 20100324
  20. PHENAZOPYRIDINE. [Concomitant]
     Active Substance: PHENAZOPYRIDINE
     Dosage: UNK
     Dates: start: 20150912
  21. NASAREL [FLUNISOLIDE] [Concomitant]
     Dosage: 29MCG/0.025% NASAL SOL 25ML- SPR TWICE LEN BID PRN
     Dates: start: 20070227
  22. NEXIUM [Suspect]
     Active Substance: ESOMEPRAZOLE MAGNESIUM
     Dosage: UNK
     Dates: start: 2005, end: 2016
  23. PREVACID 24 HR [Suspect]
     Active Substance: LANSOPRAZOLE
     Dosage: UNK
     Route: 048
     Dates: start: 2005, end: 2016
  24. OMEPRAZOLE. [Suspect]
     Active Substance: OMEPRAZOLE
     Dosage: 40 MG, UNK
     Route: 048
     Dates: start: 2010, end: 2016
  25. DIOVAN [Concomitant]
     Active Substance: VALSARTAN
     Indication: HYPERTENSION
     Dosage: UNK
     Dates: start: 2004, end: 2011
  26. DIOVAN [Concomitant]
     Active Substance: VALSARTAN
     Dosage: UNK
     Dates: start: 20080204
  27. AZITHROMYCIN ANHYDROUS. [Concomitant]
     Active Substance: AZITHROMYCIN ANHYDROUS
     Indication: ANTIBIOTIC THERAPY
     Dosage: UNK
     Dates: start: 2006, end: 2014
  28. TOBRAMYCIN. [Concomitant]
     Active Substance: TOBRAMYCIN
     Indication: LUNG INFECTION
     Dosage: UNK
     Dates: start: 2005
  29. TOBRAMYCIN. [Concomitant]
     Active Substance: TOBRAMYCIN
     Dosage: 0.3% OPHTH SOLN 5ML-INSTILL 1 DROP IN LEFT EYE QID FOR 5 DAYS
     Dates: start: 20051230
  30. IBUPROFEN. [Concomitant]
     Active Substance: IBUPROFEN
     Indication: PAIN
     Dosage: GENERIC- TK 1 T PO TID
     Dates: start: 20060328
  31. PEPCID [Concomitant]
     Active Substance: FAMOTIDINE
     Dosage: UNK
     Dates: start: 1984
  32. PEPCID AC (OTC) [Concomitant]
     Dosage: UNK
     Dates: start: 1990
  33. ZANTAC 150 (OTC) [Concomitant]
     Dosage: UNK
     Dates: start: 1970
  34. ZANTAC 75 (OTC) [Concomitant]
     Dosage: UNK
     Dates: start: 1970
  35. CLONIDINE HYDROCHLORIDE. [Concomitant]
     Active Substance: CLONIDINE HYDROCHLORIDE
     Indication: HYPERTENSION
     Dosage: UNK
     Dates: start: 2007, end: 2015
  36. CLONIDINE HYDROCHLORIDE. [Concomitant]
     Active Substance: CLONIDINE HYDROCHLORIDE
     Dosage: 1 DF, 4X/DAY(ONE EVERY 6HOURS)
     Dates: start: 20070120
  37. SIMVASTATIN. [Concomitant]
     Active Substance: SIMVASTATIN
     Dosage: UNK
     Dates: start: 20110530
  38. SIMVASTATIN. [Concomitant]
     Active Substance: SIMVASTATIN
     Dosage: 1 DF, 1X/DAY
     Dates: start: 20091225
  39. OXYCODONE/PARACETAMOL [Concomitant]
     Dosage: 10MG/325MG- TK 1 T PO Q 6 H  UNK
     Dates: start: 20070508
  40. DICLOFENAC SODIUM. [Concomitant]
     Active Substance: DICLOFENAC SODIUM
     Dosage: UNK
     Dates: start: 20080709
  41. BENICAR [Concomitant]
     Active Substance: OLMESARTAN MEDOXOMIL
     Dosage: UNK
     Dates: start: 20100824
  42. LISINOPRIL. [Concomitant]
     Active Substance: LISINOPRIL
     Dosage: UNK
     Dates: start: 20101115
  43. AMOXICILLIN. [Concomitant]
     Active Substance: AMOXICILLIN
     Dosage: 1 DF, 3X/DAY
     Dates: start: 20070104
  44. CIPROFLOXACIN. [Concomitant]
     Active Substance: CIPROFLOXACIN
     Dosage: UNK
     Dates: start: 20150912
  45. BACLOFEN. [Concomitant]
     Active Substance: BACLOFEN
     Dosage: UNK
     Dates: start: 20130805
  46. VERELAN [Concomitant]
     Active Substance: VERAPAMIL HYDROCHLORIDE
     Dosage: 1 DF, 1X/DAY
     Dates: start: 20070227
  47. CARISOPRODOL. [Concomitant]
     Active Substance: CARISOPRODOL
     Indication: MUSCLE SPASMS
     Dosage: 1 DF, CYCLIC(ONCE EVERY 8 HOUR)
     Dates: start: 20070508
  48. CELEBREX [Concomitant]
     Active Substance: CELECOXIB
     Dosage: 1 DF, 1X/DAY
     Route: 048
     Dates: start: 20070104
  49. PROTONIX [Suspect]
     Active Substance: PANTOPRAZOLE SODIUM
     Dosage: UNK
     Dates: start: 2005, end: 2016
  50. PANTOPRAZOLE [Suspect]
     Active Substance: PANTOPRAZOLE
     Indication: GASTROOESOPHAGEAL REFLUX DISEASE
     Dosage: 40 MG, UNK
     Route: 048
     Dates: start: 20160630
  51. ARTHROTEC [Concomitant]
     Active Substance: DICLOFENAC SODIUM\MISOPROSTOL
     Dosage: 1 DF, 2X/DAY
     Route: 048
     Dates: start: 20051129
  52. PREMARIN [Concomitant]
     Active Substance: ESTROGENS, CONJUGATED
     Indication: BLOOD OESTROGEN DECREASED
     Dosage: UNK
     Dates: start: 2004, end: 2008
  53. MOTRIN [Concomitant]
     Active Substance: IBUPROFEN
     Dosage: 1 DF, 3X/DAY
     Dates: start: 20060803
  54. AZITHROMYCIN ANHYDROUS. [Concomitant]
     Active Substance: AZITHROMYCIN ANHYDROUS
     Dosage: TK UTD
     Dates: start: 20060425
  55. ZANTAC [Concomitant]
     Active Substance: RANITIDINE HYDROCHLORIDE
     Dosage: UNK
     Dates: start: 1970
  56. TUMS [Concomitant]
     Active Substance: CALCIUM CARBONATE
     Indication: ANTACID THERAPY
     Dosage: UNK
     Dates: start: 1998
  57. MILK OF MAGNESIA [Concomitant]
     Active Substance: MAGNESIUM HYDROXIDE
     Dosage: UNK UNK, 2X/WEEK
     Dates: start: 2014
  58. MILK OF MAGNESIA [Concomitant]
     Active Substance: MAGNESIUM HYDROXIDE
     Dosage: UNK UNK, 2X/WEEK
     Dates: start: 2017
  59. HYDRALAZINE HYDROCHLORIDE. [Concomitant]
     Active Substance: HYDRALAZINE HYDROCHLORIDE
     Dosage: UNK
     Dates: start: 20110803
  60. ALPRAZOLAM. [Concomitant]
     Active Substance: ALPRAZOLAM
     Dosage: UNK
     Dates: start: 20111012
  61. FLUTICASONE. [Concomitant]
     Active Substance: FLUTICASONE
     Dosage: PROP 50 MCG SPRAY
     Dates: start: 20100820
  62. AMLODIPINE BESYLATE. [Concomitant]
     Active Substance: AMLODIPINE BESYLATE
     Dosage: UNK
     Dates: start: 20100824
  63. ACETAMINOPHEN;CODEINE [Concomitant]
     Dosage: 300-30 MG
     Dates: start: 20090205
  64. DOXYCYCLINE HYCLATE. [Concomitant]
     Active Substance: DOXYCYCLINE HYCLATE
     Dosage: UNK
     Dates: start: 20160229
  65. VERELAN [Concomitant]
     Active Substance: VERAPAMIL HYDROCHLORIDE
     Dosage: UNK
     Dates: start: 20080528
  66. LEVAQUIN [Concomitant]
     Active Substance: LEVOFLOXACIN
     Dosage: 1 DF, 1X/DAY
     Route: 048
     Dates: start: 20070508
  67. NEXIUM [Suspect]
     Active Substance: ESOMEPRAZOLE MAGNESIUM
     Indication: GASTROOESOPHAGEAL REFLUX DISEASE
     Dosage: 40 MG, UNK
     Route: 048
     Dates: start: 2005, end: 2007
  68. PREVACID [Suspect]
     Active Substance: LANSOPRAZOLE
     Indication: GASTROOESOPHAGEAL REFLUX DISEASE
     Dosage: 30 MG, UNK
     Route: 048
     Dates: start: 2007
  69. PREVACID [Suspect]
     Active Substance: LANSOPRAZOLE
     Dosage: 30 MG, UNK
     Route: 048
     Dates: start: 2008
  70. PREVACID 24 HR [Suspect]
     Active Substance: LANSOPRAZOLE
     Dosage: UNK
     Dates: start: 2008
  71. PROTONIX [Suspect]
     Active Substance: PANTOPRAZOLE SODIUM
     Indication: GASTROOESOPHAGEAL REFLUX DISEASE
     Dosage: 40 MG, UNK
     Route: 048
     Dates: start: 2006
  72. OMEPRAZOLE. [Suspect]
     Active Substance: OMEPRAZOLE
     Indication: GASTROOESOPHAGEAL REFLUX DISEASE
     Dosage: 10 MG, UNK
     Route: 048
     Dates: start: 2010, end: 2016
  73. CLONIDINE. [Concomitant]
     Active Substance: CLONIDINE
     Indication: HYPERTENSION
     Dosage: UNK
     Dates: start: 2007, end: 2015
  74. ZANTAC [Concomitant]
     Active Substance: RANITIDINE HYDROCHLORIDE
     Dosage: UNK
     Dates: start: 1989
  75. TUMS [Concomitant]
     Active Substance: CALCIUM CARBONATE
     Dosage: UNK
     Dates: start: 2017
  76. CLONIDINE HYDROCHLORIDE. [Concomitant]
     Active Substance: CLONIDINE HYDROCHLORIDE
     Dosage: CATAPRES-TISO.3/24HRDLS
     Dates: start: 20070215
  77. HYDROCHLOROTHIAZIDE. [Concomitant]
     Active Substance: HYDROCHLOROTHIAZIDE
     Dosage: 1 DF, 1X/DAY
     Route: 048
     Dates: start: 20070121
  78. BENICAR HCT [Concomitant]
     Active Substance: HYDROCHLOROTHIAZIDE\OLMESARTAN MEDOXOMIL
     Dosage: 1 DF, 1X/DAY (40-12.5 MG   )
     Dates: start: 20120104
  79. OXYCODONE/PARACETAMOL [Concomitant]
     Indication: PAIN
     Dosage: UNK
     Dates: start: 20091225
  80. LISINOPRIL. [Concomitant]
     Active Substance: LISINOPRIL
     Dosage: UNK
     Dates: start: 20100307
  81. VESICARE [Concomitant]
     Active Substance: SOLIFENACIN SUCCINATE
     Dosage: UNK
     Dates: start: 20130808
  82. RESTASIS [Concomitant]
     Active Substance: CYCLOSPORINE
     Dosage: INT 1 GTT IN OU BID
     Route: 047
     Dates: start: 20060928
  83. NEXIUM 24HR [Suspect]
     Active Substance: ESOMEPRAZOLE MAGNESIUM
     Dosage: UNK
     Route: 048
     Dates: start: 2005, end: 2016
  84. DIOVAN [Concomitant]
     Active Substance: VALSARTAN
     Dosage: 1 DF, 1X/DAY
     Dates: start: 20041022
  85. TYLENOL [Concomitant]
     Active Substance: ACETAMINOPHEN
     Indication: ARTHRITIS
     Dosage: UNK
     Dates: start: 2014, end: 2017
  86. ZANTAC 75 (OTC) [Concomitant]
     Dosage: UNK
     Dates: start: 1989
  87. GLYBURIDE. [Concomitant]
     Active Substance: GLYBURIDE
     Dosage: UNK
     Dates: start: 20110506
  88. LORAZEPAM. [Concomitant]
     Active Substance: LORAZEPAM
     Dosage: 1 DF, 1X/DAY
     Dates: start: 20070816
  89. RAMIPRIL. [Concomitant]
     Active Substance: RAMIPRIL
     Dosage: UNK
     Dates: start: 20110507
  90. AMLODIPINE BENAZEPRIL [Concomitant]
     Active Substance: AMLODIPINE BESYLATE\BENAZEPRIL HYDROCHLORIDE
     Dosage: UNK
     Dates: start: 20100726
  91. AMLODIPINE BESYLATE. [Concomitant]
     Active Substance: AMLODIPINE BESYLATE
     Dosage: UNK
     Dates: start: 20090313
  92. METOPROLOL. [Concomitant]
     Active Substance: METOPROLOL
     Dosage: UNK
     Dates: start: 20100629
  93. METOPROLOL TARTRATE. [Concomitant]
     Active Substance: METOPROLOL TARTRATE
     Dosage: TAKE 1 TABLET TWICE DAILY
  94. CRESTOR [Concomitant]
     Active Substance: ROSUVASTATIN CALCIUM
     Dosage: UNK
     Dates: start: 20080709
  95. CIPROFLOXACIN. [Concomitant]
     Active Substance: CIPROFLOXACIN
     Dosage: 0.3% OPHTH SOLN 5ML (EYE)- INSTILL 1 DROP IN EACH EYE QID FOR 7 DAYS
     Dates: start: 20140731
  96. ZYMAR [Concomitant]
     Active Substance: GATIFLOXACIN
     Dosage: .3% OPHTH SOLN 5ML- INT 1 GTT QID IN OS
     Dates: start: 20060705
  97. MOXIFLOXACIN. [Concomitant]
     Active Substance: MOXIFLOXACIN
     Dosage: 1 DF, 1X/DAY
     Dates: start: 20160630
  98. NEXIUM [Suspect]
     Active Substance: ESOMEPRAZOLE MAGNESIUM
     Dosage: 1 DF, 1X/DAY
     Route: 048
     Dates: start: 20051004
  99. PREVACID 24 HR [Suspect]
     Active Substance: LANSOPRAZOLE
     Dosage: UNK
     Dates: start: 20071220
  100. METHYLPREDNISOLONE. [Concomitant]
     Active Substance: METHYLPREDNISOLONE
     Indication: STEROID THERAPY
     Dosage: UNK
     Dates: start: 2004
  101. MOTRIN [Concomitant]
     Active Substance: IBUPROFEN
     Indication: PAIN
     Dosage: UNK
     Dates: start: 2006
  102. CENTRUM SILVER [Concomitant]
     Active Substance: MINERALS\VITAMINS
     Indication: SUPPLEMENTATION THERAPY
     Dosage: UNK
     Dates: start: 2007, end: 2008
  103. PEPCID [Concomitant]
     Active Substance: FAMOTIDINE
     Dosage: UNK
     Dates: start: 1990
  104. ZANTAC 150 (OTC) [Concomitant]
     Dosage: UNK
     Dates: start: 1989
  105. TUMS [Concomitant]
     Active Substance: CALCIUM CARBONATE
     Dosage: UNK
     Dates: start: 2007
  106. TRIAMTERENE AND HYDROCHLOROTHIAZID [Concomitant]
     Active Substance: HYDROCHLOROTHIAZIDE\TRIAMTERENE
     Dosage: 37.5-25 MG
     Dates: start: 20101119
  107. LORAZEPAM. [Concomitant]
     Active Substance: LORAZEPAM
     Dosage: TAKE 1 TABLET BY MOUTH TWICE A DAY AS NEEDED
  108. DIPHENOXYLATE/ATROPINE [Concomitant]
     Active Substance: ATROPINE\DIPHENOXYLATE
     Dosage: UNK
     Dates: start: 20070918
  109. FLUVIRIN [INFLUENZA VACCINE INACT SAG 3V] [Concomitant]
     Dosage: FLUZONE HIGH-DOSE 2014-150-5ML SYR
     Dates: start: 20140913
  110. NIFEDIPINE. [Concomitant]
     Active Substance: NIFEDIPINE
     Dosage: UNK
     Dates: start: 20140902
  111. LOVENOX [Concomitant]
     Active Substance: ENOXAPARIN SODIUM
     Dosage: PREFILLED SYRN
     Dates: start: 20091225
  112. FLUCONAZOLE. [Concomitant]
     Active Substance: FLUCONAZOLE
     Dosage: UNK
     Dates: start: 20141118
  113. AMOXICILLIN. [Concomitant]
     Active Substance: AMOXICILLIN
     Dosage: UNK
     Dates: start: 20100223
  114. ALLEGRA-D 24 HOUR [Concomitant]
     Active Substance: FEXOFENADINE HYDROCHLORIDE\PSEUDOEPHEDRINE HYDROCHLORIDE
     Dosage: UNK
     Dates: start: 20100414
  115. MEDOXOMIL-HCTZ [Concomitant]
     Dosage: 1 DF, 1X/DAY
  116. PROTONIX [Suspect]
     Active Substance: PANTOPRAZOLE SODIUM
     Dosage: 40 MG, UNK
     Route: 048
     Dates: start: 2007
  117. PROTONIX [Suspect]
     Active Substance: PANTOPRAZOLE SODIUM
     Dosage: UNK
     Dates: start: 2016
  118. OMEPRAZOLE. [Suspect]
     Active Substance: OMEPRAZOLE
     Dosage: UNK
     Route: 048
     Dates: start: 20080528
  119. ARTHROTEC [Concomitant]
     Active Substance: DICLOFENAC SODIUM\MISOPROSTOL
     Indication: ARTHRITIS
     Dosage: UNK
     Dates: start: 2005, end: 2006
  120. METHYLPREDNISOLONE. [Concomitant]
     Active Substance: METHYLPREDNISOLONE
     Dosage: TK UTD
     Dates: start: 20041202
  121. PEPCID AC (OTC) [Concomitant]
     Dosage: UNK
     Dates: start: 1984
  122. MILK OF MAGNESIA [Concomitant]
     Active Substance: MAGNESIUM HYDROXIDE
     Indication: ANTACID THERAPY
     Dosage: UNK
  123. PREDNISONE. [Concomitant]
     Active Substance: PREDNISONE
     Dosage: UNK
     Dates: start: 20110623
  124. TRAMADOL HYDROCHLORIDE. [Concomitant]
     Active Substance: TRAMADOL HYDROCHLORIDE
     Indication: PAIN
     Dosage: TK 1 T PO QID PRN OR TAKE 1 TABLET BY MOUTH 4 TIMES A DAY AS NEEDED
     Route: 048
     Dates: start: 20120120
  125. LOVASTATIN. [Concomitant]
     Active Substance: LOVASTATIN
     Dosage: UNK
     Dates: start: 20111020
  126. LORAZEPAM. [Concomitant]
     Active Substance: LORAZEPAM
     Dosage: UNK
     Dates: start: 20071129
  127. OXYCODONE/PARACETAMOL [Concomitant]
     Dosage: 5-325 MG- TAKE 1 TABLET BY MOUTH EVERY 4 TO 6 HOURS AS NEEDED   UNK
     Dates: start: 20160220
  128. AMOXCLAV [AMOXICILLIN;CLAVULANIC ACID] [Concomitant]
     Dosage: 875-125 MG
     Dates: start: 20140723
  129. FERROUS SULFATE. [Concomitant]
     Active Substance: FERROUS SULFATE
     Dosage: UNK
     Dates: start: 20091225
  130. SULFAMETHOXAZOLE [Concomitant]
     Active Substance: SULFAMETHOXAZOLE
     Dosage: UNK
     Dates: start: 20091225
  131. METHOCARBAMOL. [Concomitant]
     Active Substance: METHOCARBAMOL
     Dosage: UNK
     Dates: start: 20120630
  132. BACLOFEN. [Concomitant]
     Active Substance: BACLOFEN
     Dosage: 1 DF, 1X/DAY
     Dates: start: 20160508
  133. SINGULAIR [Concomitant]
     Active Substance: MONTELUKAST SODIUM
     Dosage: UNK
     Dates: start: 20060517
  134. OMNICEF [CEFDINIR] [Concomitant]
     Dosage: 1 DF, 2X/DAY
     Dates: start: 20051230
  135. SULINDAC. [Concomitant]
     Active Substance: SULINDAC
     Indication: ARTHRALGIA
     Dosage: TAKE 1 TABLET BY MOUTH TWICE DAILY FOR 3 DAYS THEN 1 TABLET TWICE DAILY AS NEEDED
     Dates: start: 20160508

REACTIONS (5)
  - End stage renal disease [Not Recovered/Not Resolved]
  - Chronic kidney disease [Not Recovered/Not Resolved]
  - Condition aggravated [Not Recovered/Not Resolved]
  - Renal injury [Not Recovered/Not Resolved]
  - Constipation [Not Recovered/Not Resolved]

NARRATIVE: CASE EVENT DATE: 2014
